APPROVED DRUG PRODUCT: EVEROLIMUS
Active Ingredient: EVEROLIMUS
Strength: 5MG
Dosage Form/Route: TABLET;ORAL
Application: A207934 | Product #002
Applicant: PH HEALTH LTD
Approved: Dec 9, 2019 | RLD: No | RS: No | Type: DISCN